FAERS Safety Report 15371266 (Version 1)
Quarter: 2018Q3

REPORT INFORMATION
  Report Type: Spontaneous
  Country: US (occurrence: US)
  Receive Date: 20180905
  Receipt Date: 20180905
  Transmission Date: 20181010
  Serious: No
  Sender: FDA-Public Use
  Company Number: None

PATIENT
  Age: 40 Year
  Sex: Female

DRUGS (1)
  1. CYCLOSPORINE (NON?MOD) [Suspect]
     Active Substance: CYCLOSPORINE
     Indication: COMBINED IMMUNODEFICIENCY
     Route: 048
     Dates: start: 20180223

REACTIONS (2)
  - Abdominal distension [None]
  - Eye swelling [None]

NARRATIVE: CASE EVENT DATE: 20180801
